FAERS Safety Report 8503661-0 (Version None)
Quarter: 2012Q3

REPORT INFORMATION
  Report Type: 
  Country: None (occurrence: None)
  Receive Date: 20120702
  Receipt Date: 20120614
  Transmission Date: 20120928
  Serious: No
  Sender: FDA-Public Use
  Company Number: SP1201200140

PATIENT
  Age: 81 Year
  Sex: Female
  Weight: 67.1 kg

DRUGS (5)
  1. NORTRIPTYLINE HCL [Concomitant]
  2. PRAVASTATIN [Concomitant]
  3. PLAVIX [Concomitant]
  4. BISOPROLOL FUMARATE AND HYDROCHLOROTHIAZIDE [Concomitant]
  5. AMITIZA [Suspect]
     Indication: IRRITABLE BOWEL SYNDROME
     Dosage: 8 MCG, BID, ORAL
     Route: 048
     Dates: start: 20120612

REACTIONS (5)
  - DYSPNOEA [None]
  - DIARRHOEA [None]
  - DRY MOUTH [None]
  - CHEST DISCOMFORT [None]
  - ABDOMINAL PAIN UPPER [None]
